FAERS Safety Report 8793420 (Version 1)
Quarter: 2012Q4

REPORT INFORMATION
  Report Type: 
  Country: US (occurrence: US)
  Receive Date: 20120918
  Receipt Date: 20120918
  Transmission Date: 20130627
  Serious: No
  Sender: FDA-Public Use
  Company Number: US-ASTRAZENECA-2012SE70173

PATIENT
  Age: 6 Year
  Sex: Female

DRUGS (3)
  1. SYMBICORT [Suspect]
     Indication: ASTHMA
     Dosage: 80/4.5 TWO PUFFS, DAILY
     Route: 055
     Dates: start: 2011
  2. SINGULAIR [Concomitant]
  3. ALLEGRA [Concomitant]
     Indication: MULTIPLE ALLERGIES

REACTIONS (3)
  - Drug dose omission [Unknown]
  - Intentional drug misuse [Unknown]
  - Off label use [Unknown]
